FAERS Safety Report 7905697-7 (Version None)
Quarter: 2011Q4

REPORT INFORMATION
  Report Type: 
  Country: None (occurrence: None)
  Receive Date: 20111110
  Receipt Date: 20110324
  Transmission Date: 20120403
  Serious: Yes (Other)
  Sender: FDA-Public Use
  Company Number: US-BAYER-2011-028771

PATIENT
  Sex: Female

DRUGS (2)
  1. ALEVE (CAPLET) [Suspect]
  2. ASPIRIN [Suspect]

REACTIONS (2)
  - ULCER [None]
  - TOXICITY TO VARIOUS AGENTS [None]
